FAERS Safety Report 18349904 (Version 1)
Quarter: 2020Q4

REPORT INFORMATION
  Report Type: Spontaneous
  Country: PT (occurrence: PT)
  Receive Date: 20201006
  Receipt Date: 20201006
  Transmission Date: 20210114
  Serious: Yes (Other)
  Sender: FDA-Public Use
  Company Number: NVSC2020PT267328

PATIENT
  Sex: Female

DRUGS (1)
  1. LEVETIRACETAM SANDOZ [Suspect]
     Active Substance: LEVETIRACETAM
     Indication: PRODUCT USED FOR UNKNOWN INDICATION
     Dosage: 500 MG
     Route: 065
     Dates: start: 20200927

REACTIONS (4)
  - Dysuria [Unknown]
  - Dizziness [Unknown]
  - Headache [Unknown]
  - Joint dislocation [Unknown]
